FAERS Safety Report 17072466 (Version 1)
Quarter: 2019Q4

REPORT INFORMATION
  Report Type: Spontaneous
  Country: US (occurrence: US)
  Receive Date: 20191124
  Receipt Date: 20191124
  Transmission Date: 20200122
  Serious: No
  Sender: FDA-Public Use
  Company Number: None

PATIENT
  Age: 33 Year
  Sex: Male
  Weight: 112.5 kg

DRUGS (1)
  1. ROHTO COOL MAX [Suspect]
     Active Substance: NAPHAZOLINE HYDROCHLORIDE\POLYSORBATE 80
     Indication: DRY EYE
     Route: 047
     Dates: start: 20191116, end: 20191116

REACTIONS (2)
  - Ocular hyperaemia [None]
  - Instillation site pain [None]

NARRATIVE: CASE EVENT DATE: 20191118
